FAERS Safety Report 19661999 (Version 1)
Quarter: 2021Q3

REPORT INFORMATION
  Report Type: Spontaneous
  Country: US (occurrence: US)
  Receive Date: 20210805
  Receipt Date: 20210805
  Transmission Date: 20211014
  Serious: No
  Sender: FDA-Public Use
  Company Number: US-PFIZER INC-2017065913

PATIENT
  Age: 58 Year
  Sex: Female
  Weight: 77.11 kg

DRUGS (3)
  1. PREMPRO [Suspect]
     Active Substance: ESTROGENS, CONJUGATED\MEDROXYPROGESTERONE ACETATE
     Indication: HORMONE LEVEL ABNORMAL
     Dosage: 1 DF, ALTERNATE DAY
     Route: 048
  2. PREMPRO [Suspect]
     Active Substance: ESTROGENS, CONJUGATED\MEDROXYPROGESTERONE ACETATE
     Dosage: 1 DF, 1X/DAY
     Route: 048
  3. PREMPRO [Suspect]
     Active Substance: ESTROGENS, CONJUGATED\MEDROXYPROGESTERONE ACETATE
     Indication: MENOPAUSAL DISORDER
     Dosage: 1 DF, 1X/DAY
     Route: 048

REACTIONS (2)
  - Off label use [Unknown]
  - Feeling abnormal [Unknown]
